FAERS Safety Report 6213612-X (Version None)
Quarter: 2009Q2

REPORT INFORMATION
  Report Type: 
  Country: None (occurrence: None)
  Receive Date: 20090601
  Receipt Date: 20090514
  Transmission Date: 20091009
  Serious: Yes (Death)
  Sender: FDA-Public Use
  Company Number: F03200900034

PATIENT
  Age: 78 Year
  Sex: Male

DRUGS (12)
  1. FLUDARABINE PHOSPHATE [Suspect]
     Indication: FOLLICLE CENTRE LYMPHOMA, FOLLICULAR GRADE I, II, III STAGE IV
     Dosage: 40 MG QD
     Route: 048
     Dates: start: 20080819
  2. ONCOVIN [Suspect]
     Indication: FOLLICLE CENTRE LYMPHOMA, FOLLICULAR GRADE I, II, III STAGE IV
     Route: 042
  3. RITUXAN [Concomitant]
  4. BAKTAR (TRIMETHOPRIM) [Concomitant]
  5. FLUCONAMERCK (FLUCONAZOLE) [Concomitant]
  6. TAKEPRON OD (LANSOPRAZOLE) [Concomitant]
  7. ZOVIRAX [Concomitant]
  8. BUP-4 (PROPIVERINE HYDROCHLORIDE) [Concomitant]
  9. MUCODYNE (CARBOCISTEINE) [Concomitant]
  10. LEFTOSE (LYSOZYME) [Concomitant]
  11. LANIRAPID (METILDIGOXIN) [Concomitant]
  12. ALDOMET [Concomitant]

REACTIONS (3)
  - ANAEMIA [None]
  - CONSTIPATION [None]
  - RENAL IMPAIRMENT [None]
